FAERS Safety Report 25717003 (Version 2)
Quarter: 2025Q3

REPORT INFORMATION
  Report Type: Spontaneous
  Country: US (occurrence: US)
  Receive Date: 20250822
  Receipt Date: 20250919
  Transmission Date: 20251021
  Serious: No
  Sender: SANOFI AVENTIS
  Company Number: US-SA-2025SA246451

PATIENT
  Age: 77 Year
  Sex: Female

DRUGS (8)
  1. DUPIXENT [Suspect]
     Active Substance: DUPILUMAB
     Indication: Dermatitis atopic
     Dosage: 300 MG, QOW
     Route: 058
     Dates: start: 20250715
  2. ALBUTEROL [Concomitant]
     Active Substance: ALBUTEROL
  3. LISINOPRIL [Concomitant]
     Active Substance: LISINOPRIL
  4. SINGULAIR [Concomitant]
     Active Substance: MONTELUKAST SODIUM
  5. TIMOLOL MALEATE [Concomitant]
     Active Substance: TIMOLOL MALEATE
  6. VERAPAMIL [Concomitant]
     Active Substance: VERAPAMIL HYDROCHLORIDE
  7. IPRATROPIUM BROMIDE [Concomitant]
     Active Substance: IPRATROPIUM BROMIDE
  8. CELEBREX [Concomitant]
     Active Substance: CELECOXIB

REACTIONS (6)
  - Lip erythema [Not Recovered/Not Resolved]
  - Blister [Not Recovered/Not Resolved]
  - Erythema of eyelid [Not Recovered/Not Resolved]
  - Chest discomfort [Not Recovered/Not Resolved]
  - Gastritis [Not Recovered/Not Resolved]
  - Erythema [Not Recovered/Not Resolved]

NARRATIVE: CASE EVENT DATE: 20250101
